FAERS Safety Report 12455233 (Version 1)
Quarter: 2016Q2

REPORT INFORMATION
  Report Type: Spontaneous
  Country: US (occurrence: None)
  Receive Date: 20160609
  Receipt Date: 20160609
  Transmission Date: 20160815
  Serious: No
  Sender: FDA-Public Use
  Company Number: None

PATIENT

DRUGS (2)
  1. BRAUN (NON-DEHP) NS 250 ML BAGS [Suspect]
     Active Substance: SODIUM CHLORIDE
  2. ETOPOSIDE. [Suspect]
     Active Substance: ETOPOSIDE

REACTIONS (3)
  - Product container seal issue [None]
  - Accidental exposure to product [None]
  - Device connection issue [None]
